FAERS Safety Report 9327256 (Version 1)
Quarter: 2013Q2

REPORT INFORMATION
  Report Type: Spontaneous
  Country: US (occurrence: US)
  Receive Date: 20130604
  Receipt Date: 20130604
  Transmission Date: 20140414
  Serious: No
  Sender: FDA-Public Use
  Company Number: US-ASTRAZENECA-2013SE25428

PATIENT
  Age: 78 Year
  Sex: Female
  Weight: 40.4 kg

DRUGS (3)
  1. PULMICORT FLEXHALER [Suspect]
     Indication: LUNG DISORDER
     Dosage: TWO INHALATIONS 180 MCG ONCE A DAY IN MORNING
     Route: 055
     Dates: start: 2011
  2. CALCIUM WITH VIT D [Concomitant]
  3. GENERIC BONEVA [Concomitant]
     Dosage: 150MG

REACTIONS (2)
  - Cough [Unknown]
  - Intentional drug misuse [Unknown]
